FAERS Safety Report 25793001 (Version 1)
Quarter: 2025Q3

REPORT INFORMATION
  Report Type: Spontaneous
  Country: US (occurrence: US)
  Receive Date: 20250911
  Receipt Date: 20250911
  Transmission Date: 20251021
  Serious: Yes (Death, Life-Threatening, Other)
  Sender: AMGEN
  Company Number: US-AMGEN-USASP2025174857

PATIENT
  Age: 77 Year
  Sex: Male

DRUGS (2)
  1. PREDNISONE [Suspect]
     Active Substance: PREDNISONE
     Indication: Immunosuppressant drug therapy
     Dosage: 60 MILLIGRAM, QD
     Route: 048
  2. METHYLPREDNISOLONE [Concomitant]
     Active Substance: METHYLPREDNISOLONE
     Dosage: 100 MILLIGRAM, QD
     Route: 040

REACTIONS (11)
  - Death [Fatal]
  - Septic shock [Unknown]
  - Cardiogenic shock [Unknown]
  - Endocarditis [Unknown]
  - Aortic valve incompetence [Unknown]
  - Traumatic heart injury [Unknown]
  - Cardiac valve vegetation [Unknown]
  - Acute kidney injury [Unknown]
  - Renal tubular necrosis [Unknown]
  - Streptococcus test positive [Unknown]
  - COVID-19 [Unknown]
